FAERS Safety Report 9556248 (Version 1)
Quarter: 2013Q3

REPORT INFORMATION
  Report Type: Report from Study
  Country: US (occurrence: US)
  Receive Date: 20130926
  Receipt Date: 20130926
  Transmission Date: 20140515
  Serious: No
  Sender: FDA-Public Use
  Company Number: PHEH2013US019861

PATIENT
  Sex: Male
  Weight: 117.91 kg

DRUGS (12)
  1. TASIGNA [Suspect]
     Indication: CHRONIC MYELOID LEUKAEMIA
     Dosage: 300 MG, BID
     Route: 048
  2. ASPIRIN [Concomitant]
     Dosage: 325 MG
  3. RANITIDINE [Concomitant]
     Dosage: 150 MG
     Route: 048
  4. METOPROLOL [Concomitant]
     Dosage: 25 MG
  5. ATORVASTATIN [Concomitant]
     Dosage: 20 MG
  6. ALPRAZOLAM [Concomitant]
     Dosage: 0.25 MG
  7. PLAVIX [Concomitant]
     Dosage: 75 MG
     Route: 048
  8. FUROSEMIDE [Concomitant]
     Dosage: 20 MG
     Route: 048
  9. SYNTHROID [Concomitant]
     Dosage: 100 UG, UNK
     Route: 048
  10. LANTUS [Concomitant]
     Dosage: 100 /ML
  11. HUMALOG [Concomitant]
     Dosage: 100 /ML
  12. HYDROMET [Concomitant]

REACTIONS (7)
  - Vomiting [Unknown]
  - Fatigue [Unknown]
  - Rhinorrhoea [Unknown]
  - Blood glucose increased [Unknown]
  - Red blood cell count decreased [Unknown]
  - Decreased appetite [Unknown]
  - Nausea [Unknown]
